FAERS Safety Report 21848573 (Version 3)
Quarter: 2023Q2

REPORT INFORMATION
  Report Type: Report from Study
  Country: US (occurrence: US)
  Receive Date: 20230111
  Receipt Date: 20230421
  Transmission Date: 20230721
  Serious: Yes (Hospitalization)
  Sender: FDA-Public Use
  Company Number: US-PFIZER INC-2022-TRIL-00008

PATIENT
  Age: 59 Year
  Sex: Female
  Weight: 110 kg

DRUGS (2)
  1. INVESTIGATIONAL PRODUCT [Suspect]
     Active Substance: INVESTIGATIONAL PRODUCT
     Indication: Cutaneous T-cell lymphoma
     Dosage: 2 MG/KG, 2 DOSES RECEIVED
     Route: 042
     Dates: start: 20210921, end: 20211005
  2. SOLU-MEDROL [Suspect]
     Active Substance: METHYLPREDNISOLONE SODIUM SUCCINATE
     Dosage: PREMED, 125 MG INJECTION, ONE DOSE ONLY
     Route: 042
     Dates: start: 20211005, end: 20211005

REACTIONS (1)
  - Gastritis [Recovered/Resolved]

NARRATIVE: CASE EVENT DATE: 20211011
